FAERS Safety Report 8904224 (Version 5)
Quarter: 2013Q2

REPORT INFORMATION
  Report Type: Spontaneous
  Country: US (occurrence: US)
  Receive Date: 20121112
  Receipt Date: 20130528
  Transmission Date: 20140414
  Serious: Yes (Hospitalization, Disabling, Other)
  Sender: FDA-Public Use
  Company Number: US-009507513-1211USA004400

PATIENT
  Sex: Female
  Weight: 86.17 kg

DRUGS (6)
  1. FOSAMAX [Suspect]
     Indication: OSTEOPOROSIS PROPHYLAXIS
     Dosage: UNK
     Route: 048
     Dates: start: 2000
  2. FOSAMAX [Suspect]
     Indication: OSTEOPENIA
  3. FOSAMAX PLUS D [Suspect]
     Indication: OSTEOPOROSIS
     Dosage: 70 MG- 2800 IU
     Route: 048
     Dates: start: 20070201, end: 20090827
  4. LEVOTHYROXINE SODIUM [Concomitant]
     Indication: HYPOTHYROIDISM
     Dosage: UNK
     Dates: start: 200604
  5. LYRICA [Concomitant]
     Indication: FIBROMYALGIA
     Dosage: UNK
     Dates: start: 200806
  6. VITAMIN D (UNSPECIFIED) [Concomitant]

REACTIONS (60)
  - Intramedullary rod insertion [Not Recovered/Not Resolved]
  - Post-traumatic stress disorder [Not Recovered/Not Resolved]
  - Low turnover osteopathy [Not Recovered/Not Resolved]
  - Sleep study [Unknown]
  - Eye operation [Unknown]
  - Haemorrhagic anaemia [Recovering/Resolving]
  - Haemorrhoid operation [Unknown]
  - Muscular weakness [Unknown]
  - Upper gastrointestinal haemorrhage [Recovering/Resolving]
  - Osteonecrosis [Unknown]
  - Syncope [Unknown]
  - Cholecystectomy [Unknown]
  - Surgery [Unknown]
  - Pain in extremity [Not Recovered/Not Resolved]
  - Pain in extremity [Not Recovered/Not Resolved]
  - Femur fracture [Not Recovered/Not Resolved]
  - Anxiety [Not Recovered/Not Resolved]
  - Depression [Not Recovered/Not Resolved]
  - Anhedonia [Not Recovered/Not Resolved]
  - Limb operation [Unknown]
  - Tooth extraction [Unknown]
  - Dental prosthesis user [Unknown]
  - Calcium deficiency [Unknown]
  - Vitamin D deficiency [Unknown]
  - Hypertension [Unknown]
  - Hypercholesterolaemia [Unknown]
  - Inflammation [Unknown]
  - Hypertonic bladder [Unknown]
  - Insomnia [Unknown]
  - Pain [Not Recovered/Not Resolved]
  - Oedema [Unknown]
  - Neuropathy peripheral [Unknown]
  - Hiatus hernia [Unknown]
  - Aortic arteriosclerosis [Unknown]
  - Rib fracture [Unknown]
  - Arthritis [Unknown]
  - Osteoarthritis [Unknown]
  - Pain [Unknown]
  - Foot deformity [Unknown]
  - Fibromyalgia [Not Recovered/Not Resolved]
  - Bunion [Unknown]
  - Bursitis [Not Recovered/Not Resolved]
  - Tenosynovitis stenosans [Recovered/Resolved]
  - Osteoarthritis [Not Recovered/Not Resolved]
  - Sleep apnoea syndrome [Unknown]
  - Restless legs syndrome [Unknown]
  - Weight increased [Unknown]
  - Spinal disorder [Unknown]
  - Pulmonary fibrosis [Unknown]
  - Atelectasis [Unknown]
  - Rib fracture [Not Recovered/Not Resolved]
  - Plantar fasciitis [Unknown]
  - Iron deficiency anaemia [Unknown]
  - Bursitis [Unknown]
  - Lordosis [Unknown]
  - Muscle spasms [Unknown]
  - Gastrooesophageal reflux disease [Unknown]
  - Headache [Unknown]
  - Gastric ulcer [Unknown]
  - Drug ineffective [Unknown]
